FAERS Safety Report 4881173-3 (Version None)
Quarter: 2006Q1

REPORT INFORMATION
  Report Type: 
  Country: None (occurrence: None)
  Receive Date: 20060111
  Receipt Date: 20060111
  Transmission Date: 20060701
  Serious: Yes (Other)
  Sender: FDA-Public Use
  Company Number: None

PATIENT
  Sex: Male
  Weight: 90.7194 kg

DRUGS (2)
  1. LIPITOR [Suspect]
     Indication: BLOOD CHOLESTEROL INCREASED
     Dosage: 10 MG   1X PER DAY  PO
     Route: 048
     Dates: start: 20011211, end: 20051101
  2. LIPITOR [Suspect]
     Indication: BLOOD TRIGLYCERIDES INCREASED
     Dosage: 10 MG   1X PER DAY  PO
     Route: 048
     Dates: start: 20011211, end: 20051101

REACTIONS (9)
  - ASTHENIA [None]
  - BLOOD TESTOSTERONE DECREASED [None]
  - BONE PAIN [None]
  - DIARRHOEA [None]
  - HYPOAESTHESIA [None]
  - INSOMNIA [None]
  - MUSCLE ATROPHY [None]
  - MYALGIA [None]
  - STOMACH DISCOMFORT [None]
